FAERS Safety Report 4615568-X (Version None)
Quarter: 2005Q1

REPORT INFORMATION
  Report Type: 
  Country: None (occurrence: None)
  Receive Date: 20050317
  Receipt Date: 20050307
  Transmission Date: 20050727
  Serious: Yes (Hospitalization)
  Sender: FDA-Public Use
  Company Number: 212902

PATIENT
  Age: 64 Year
  Sex: Male
  Weight: 60 kg

DRUGS (8)
  1. AVASTIN [Suspect]
     Indication: HEPATIC NEOPLASM MALIGNANT
     Dosage: 603 MG, Q3W, INTRAVENOUS
     Route: 042
     Dates: start: 20050208, end: 20050222
  2. GEMCITABINE (GEMCITABINE HYDROCHLORIDE) [Suspect]
     Indication: HEPATIC NEOPLASM MALIGNANT
     Dosage: 1690 MG, Q3W, INTRAVENOUS
     Route: 042
     Dates: start: 20050222, end: 20050223
  3. OXALIPLATIN (OXALIPLATIN) [Suspect]
     Indication: HEPATIC NEOPLASM MALIGNANT
     Dosage: 144 MG, Q3W, INTRAVENOUS
     Route: 042
     Dates: start: 20050222, end: 20050223
  4. OXYCONTIN (OXYCONTIN HYDROCHLORIDE) [Concomitant]
  5. OXYCODONE (OXYCODONE) [Concomitant]
  6. ATIVAN [Concomitant]
  7. COMPAZINE [Concomitant]
  8. ZOFRAN [Concomitant]

REACTIONS (3)
  - CHILLS [None]
  - DRUG TOXICITY [None]
  - PYREXIA [None]
